FAERS Safety Report 10365954 (Version 2)
Quarter: 2014Q3

REPORT INFORMATION
  Report Type: Report from Study
  Country: AU (occurrence: AU)
  Receive Date: 20140806
  Receipt Date: 20140806
  Transmission Date: 20150326
  Serious: Yes (Hospitalization)
  Sender: FDA-Public Use
  Company Number: PHHY2014AU092542

PATIENT
  Sex: Male

DRUGS (2)
  1. CLOZARIL [Suspect]
     Active Substance: CLOZAPINE
     Dosage: UNK
     Route: 048
     Dates: start: 20140725
  2. CLOZARIL [Suspect]
     Active Substance: CLOZAPINE
     Indication: SCHIZOPHRENIA
     Dosage: 25 MG
     Route: 048
     Dates: start: 19950824

REACTIONS (4)
  - Psychotic disorder [Recovering/Resolving]
  - Mental impairment [Unknown]
  - Catatonia [Recovering/Resolving]
  - Unresponsive to stimuli [Recovering/Resolving]
